FAERS Safety Report 7949690-7 (Version None)
Quarter: 2011Q4

REPORT INFORMATION
  Report Type: 
  Country: None (occurrence: None)
  Receive Date: 20111130
  Receipt Date: 20111117
  Transmission Date: 20120403
  Serious: Yes (Hospitalization)
  Sender: FDA-Public Use
  Company Number: US-BAYER-2010-002169

PATIENT
  Age: 32 Year
  Sex: Female
  Weight: 73.469 kg

DRUGS (2)
  1. VICODIN [Concomitant]
     Dosage: UNK
     Dates: start: 20081117
  2. YAZ [Suspect]
     Indication: PREMENSTRUAL SYNDROME
     Dosage: UNK
     Route: 048
     Dates: start: 20080911, end: 20081201

REACTIONS (3)
  - PAIN [None]
  - DEEP VEIN THROMBOSIS [None]
  - CHOLELITHIASIS [None]
